FAERS Safety Report 5685138-3 (Version None)
Quarter: 2008Q1

REPORT INFORMATION
  Report Type: 
  Country: None (occurrence: None)
  Receive Date: 20080328
  Receipt Date: 20080320
  Transmission Date: 20080703
  Serious: Yes (Other)
  Sender: FDA-Public Use
  Company Number: FR-PFIZER INC-2006123923

PATIENT
  Sex: Male
  Weight: 83 kg

DRUGS (2)
  1. AMLOR [Suspect]
     Indication: HYPERTENSION
     Route: 048
     Dates: start: 20060726, end: 20060925
  2. AVANDAMET [Concomitant]
     Route: 048

REACTIONS (1)
  - RENAL FAILURE [None]
